FAERS Safety Report 5033268-1 (Version None)
Quarter: 2006Q2

REPORT INFORMATION
  Report Type: 
  Country: None (occurrence: None)
  Receive Date: 20060623
  Receipt Date: 20060614
  Transmission Date: 20061013
  Serious: Yes (Hospitalization)
  Sender: FDA-Public Use
  Company Number: PT-JNJFOC-20060505399

PATIENT
  Sex: Female
  Weight: 62 kg

DRUGS (6)
  1. REMICADE [Suspect]
     Indication: RHEUMATOID ARTHRITIS
     Dosage: 4 MOTH INTERUPTION BETWEEN DEC-2004 AND APR-2005
     Route: 042
  2. FOLIC ACID [Concomitant]
     Route: 065
  3. METICORTEN [Concomitant]
     Dosage: 5-10MG
     Route: 065
  4. METHOTREXATE [Concomitant]
     Route: 065
  5. PREDNISONA [Concomitant]
     Route: 065
  6. COX-2 [Concomitant]
     Route: 065

REACTIONS (1)
  - DISSEMINATED TUBERCULOSIS [None]
